FAERS Safety Report 6265217-2 (Version None)
Quarter: 2009Q3

REPORT INFORMATION
  Report Type: 
  Country: None (occurrence: None)
  Receive Date: 20090713
  Receipt Date: 20090707
  Transmission Date: 20100115
  Serious: Yes (Other)
  Sender: FDA-Public Use
  Company Number: US-ROCHE-642926

PATIENT
  Sex: Female
  Weight: 54.4 kg

DRUGS (1)
  1. CAPECITABINE [Suspect]
     Indication: COLORECTAL CANCER
     Route: 048
     Dates: start: 20090211, end: 20090606

REACTIONS (2)
  - FALL [None]
  - HIP FRACTURE [None]
